FAERS Safety Report 4902561-2 (Version None)
Quarter: 2006Q1

REPORT INFORMATION
  Report Type: 
  Country: None (occurrence: None)
  Receive Date: 20060109
  Receipt Date: 20050406
  Transmission Date: 20060701
  Serious: Yes (Other)
  Sender: FDA-Public Use
  Company Number: BDI-007096

PATIENT
  Age: 28 Year
  Sex: Female

DRUGS (2)
  1. SINOGRAFIN [Suspect]
     Indication: HYSTEROSALPINGOGRAM
     Dosage: SY
     Dates: start: 20050406, end: 20050406
  2. FOLIC ACID [Concomitant]

REACTIONS (7)
  - BLOOD PRESSURE DECREASED [None]
  - HYPERHIDROSIS [None]
  - HYPERVENTILATION [None]
  - OXYGEN SATURATION DECREASED [None]
  - PAIN IN EXTREMITY [None]
  - TETANY [None]
  - TREMOR [None]
